FAERS Safety Report 10028337 (Version 1)
Quarter: 2014Q1

REPORT INFORMATION
  Report Type: Spontaneous
  Country: GB (occurrence: GB)
  Receive Date: 20140321
  Receipt Date: 20140321
  Transmission Date: 20141002
  Serious: Yes (Hospitalization, Other)
  Sender: FDA-Public Use
  Company Number: PHFR2014GB002266

PATIENT
  Sex: Male

DRUGS (3)
  1. CLOZARIL [Suspect]
     Indication: SCHIZOPHRENIA
     Dosage: 550 MG, UNK
     Route: 048
     Dates: start: 20120706
  2. CLOZARIL [Suspect]
     Dosage: 300 MG, QD
  3. CLOZARIL [Suspect]
     Dosage: 275 MG, UNK

REACTIONS (3)
  - Eating disorder [Unknown]
  - Circulatory collapse [Unknown]
  - Hypotension [Unknown]
